FAERS Safety Report 9562840 (Version 3)
Quarter: 2013Q4

REPORT INFORMATION
  Report Type: Spontaneous
  Country: IT (occurrence: IT)
  Receive Date: 20130927
  Receipt Date: 20131115
  Transmission Date: 20140711
  Serious: Yes (Other)
  Sender: FDA-Public Use
  Company Number: IT-ABBVIE-13X-083-1136227-00

PATIENT
  Age: 61 Year
  Sex: Male

DRUGS (2)
  1. FULCROSUPRA [Suspect]
     Indication: BLOOD TRIGLYCERIDES INCREASED
     Dosage: TOTAL 18 TABLETS
     Route: 048
     Dates: start: 201302
  2. DELAPRIDE [Concomitant]
     Indication: HYPERTENSION
     Dates: start: 1993

REACTIONS (8)
  - Groin pain [Not Recovered/Not Resolved]
  - Pain in extremity [Not Recovered/Not Resolved]
  - Fatigue [Not Recovered/Not Resolved]
  - Back pain [Not Recovered/Not Resolved]
  - Somnolence [Not Recovered/Not Resolved]
  - Mental disorder [Unknown]
  - Activities of daily living impaired [Unknown]
  - Myalgia [Unknown]
